FAERS Safety Report 4861845-7 (Version None)
Quarter: 2005Q4

REPORT INFORMATION
  Report Type: 
  Country: None (occurrence: None)
  Receive Date: 20051129
  Receipt Date: 20050602
  Transmission Date: 20060501
  Serious: Yes (Disabling)
  Sender: FDA-Public Use
  Company Number: WAES 0506USA00609

PATIENT
  Age: 77 Year
  Sex: Female

DRUGS (3)
  1. FOSAMAX [Suspect]
     Indication: OSTEOPOROSIS
     Dosage: 70 MG / WKY/ PO
     Route: 048
     Dates: start: 20050404, end: 20050411
  2. FOSAMAX [Suspect]
     Indication: OSTEOPOROSIS
     Dosage: 70 MG / WKY/ PO
     Route: 048
     Dates: start: 20050621
  3. . [Concomitant]

REACTIONS (2)
  - MUSCLE SPASMS [None]
  - NECK PAIN [None]
